FAERS Safety Report 21141798 (Version 1)
Quarter: 2022Q3

REPORT INFORMATION
  Report Type: Report from Study
  Country: US (occurrence: US)
  Receive Date: 20220728
  Receipt Date: 20220728
  Transmission Date: 20221026
  Serious: Yes (Death, Hospitalization, Other)
  Sender: FDA-Public Use
  Company Number: US-009507513-2207USA004368

PATIENT
  Sex: Female
  Weight: 66 kg

DRUGS (9)
  1. KEYTRUDA [Suspect]
     Active Substance: PEMBROLIZUMAB
     Indication: Glioblastoma
     Dosage: 200 MILLIGRAM
     Route: 042
     Dates: start: 20210805
  2. KEYTRUDA [Suspect]
     Active Substance: PEMBROLIZUMAB
     Dosage: 200 MILLIGRAM
     Route: 042
     Dates: start: 20210902
  3. KEYTRUDA [Suspect]
     Active Substance: PEMBROLIZUMAB
     Dosage: 200 MILLIGRAM
     Route: 042
     Dates: start: 20210922
  4. KEYTRUDA [Suspect]
     Active Substance: PEMBROLIZUMAB
     Dosage: 200 MILLIGRAM
     Route: 042
     Dates: start: 20211019
  5. KEYTRUDA [Suspect]
     Active Substance: PEMBROLIZUMAB
     Dosage: 200 MILLIGRAM
     Route: 042
     Dates: start: 20211109
  6. LOMUSTINE [Suspect]
     Active Substance: LOMUSTINE
     Indication: Malignant neoplasm progression
     Dosage: 90 MILLIGRAM/SQ. METER (140 MG), CYCLICAL, C1
     Dates: start: 20210723
  7. LOMUSTINE [Suspect]
     Active Substance: LOMUSTINE
     Dosage: 80 MILLIGRAM, CYCLICAL, C2
     Dates: start: 20210923
  8. AVASTIN [Suspect]
     Active Substance: BEVACIZUMAB
     Indication: Glioblastoma
     Dosage: UNK
     Dates: start: 20211130, end: 20211130
  9. DECADRON [Concomitant]
     Active Substance: DEXAMETHASONE
     Dosage: 4 MILLIGRAM DAILY
     Dates: start: 20210726

REACTIONS (31)
  - Malignant neoplasm progression [Fatal]
  - Large intestine perforation [Recovering/Resolving]
  - Pelvic fracture [Unknown]
  - Brain oedema [Unknown]
  - Thrombocytopenia [Recovered/Resolved]
  - Seizure [Recovered/Resolved]
  - Pseudomeningocele [Unknown]
  - Encephalopathy [Recovered/Resolved]
  - Leukopenia [Unknown]
  - Sepsis [Unknown]
  - Hospice care [Unknown]
  - Aphasia [Unknown]
  - Procedural site reaction [Unknown]
  - Fatigue [Unknown]
  - Headache [Unknown]
  - Insomnia [Unknown]
  - Arthralgia [Recovering/Resolving]
  - Urinary tract infection [Unknown]
  - Peripheral swelling [Unknown]
  - Asthenia [Unknown]
  - Hypokinesia [Unknown]
  - Somnolence [Unknown]
  - Swelling face [Unknown]
  - Oedema peripheral [Unknown]
  - Gastritis [Unknown]
  - Nausea [Unknown]
  - Hyponatraemia [Unknown]
  - Product use in unapproved indication [Unknown]
  - Product use issue [Unknown]
  - Product use issue [Unknown]
  - Product use issue [Unknown]

NARRATIVE: CASE EVENT DATE: 20210101
